FAERS Safety Report 11948619 (Version 1)
Quarter: 2016Q1

REPORT INFORMATION
  Report Type: Spontaneous
  Country: PT (occurrence: PT)
  Receive Date: 20160125
  Receipt Date: 20160125
  Transmission Date: 20160526
  Serious: Yes (Disabling)
  Sender: FDA-Public Use
  Company Number: PT-009507513-1601PRT007322

PATIENT
  Age: 28 Year
  Sex: Female
  Weight: 62 kg

DRUGS (1)
  1. IMPLANON [Suspect]
     Active Substance: ETONOGESTREL
     Indication: CONTRACEPTION
     Route: 058
     Dates: start: 201510

REACTIONS (8)
  - Breast pain [Not Recovered/Not Resolved]
  - Dizziness [Recovering/Resolving]
  - Lip dry [Not Recovered/Not Resolved]
  - Somnolence [Not Recovered/Not Resolved]
  - Blood pressure decreased [Not Recovered/Not Resolved]
  - Dysuria [Not Recovered/Not Resolved]
  - Fatigue [Not Recovered/Not Resolved]
  - Back pain [Not Recovered/Not Resolved]

NARRATIVE: CASE EVENT DATE: 201512
